FAERS Safety Report 10375329 (Version 2)
Quarter: 2014Q4

REPORT INFORMATION
  Report Type: Report from Study
  Country: US (occurrence: US)
  Receive Date: 20140811
  Receipt Date: 20141008
  Transmission Date: 20150528
  Serious: Yes (Other)
  Sender: FDA-Public Use
  Company Number: US-SA-2014SA105692

PATIENT
  Age: 74 Year
  Sex: Male

DRUGS (25)
  1. SOLOSTAR [Concomitant]
     Active Substance: DEVICE
  2. MORPHINE [Concomitant]
     Active Substance: MORPHINE
     Indication: PAIN
     Dosage: TIME OF DOSAGES: MORNING AND EVENING
  3. ALBUTEROL W/IPRATROPIUM [Concomitant]
     Active Substance: ALBUTEROL\IPRATROPIUM
     Indication: DYSPNOEA
     Dosage: TIME OF DOSAGES: EVERY 4 HOURS AS NEEDED
  4. CENTRUM [Concomitant]
     Active Substance: VITAMINS
     Dosage: TIME OF DOSAGES: MORNING
  5. ASPIRIN. [Concomitant]
     Active Substance: ASPIRIN
     Indication: CORONARY ARTERY DISEASE
     Dosage: TIME OF DOSAGES:MORNING
  6. NYSTATIN. [Concomitant]
     Active Substance: NYSTATIN
     Indication: EXCORIATION
     Dosage: TIME OF DOSAGES:MORNING, NOON AND EVENING?FORM: POWDER
  7. MIRALAX [Concomitant]
     Active Substance: POLYETHYLENE GLYCOL 3350
     Indication: CONSTIPATION
     Dosage: TIME OF DOSAGES:MORNING
  8. LYRICA [Concomitant]
     Active Substance: PREGABALIN
     Indication: NEUROPATHY PERIPHERAL
     Dosage: TIME OF DOSAGES: MORNING, NOON AND EVENING
  9. ACETAMINOPHEN. [Concomitant]
     Active Substance: ACETAMINOPHEN
     Indication: PYREXIA
     Dosage: TIME OF DOSAGES: EVERY 4 HOUR AS NEEDED
  10. HUMALOG [Concomitant]
     Active Substance: INSULIN LISPRO
     Indication: DIABETES MELLITUS
     Dosage: TIME OF DOSAGES:MORNINNG, NOON AND EVENING DOSE:20 UNIT(S)
  11. NORVASC [Concomitant]
     Active Substance: AMLODIPINE BESYLATE
     Indication: BLOOD PRESSURE
     Dosage: TIME OF DOSAGES: MORNING
  12. NORCO [Concomitant]
     Active Substance: ACETAMINOPHEN\HYDROCODONE BITARTRATE
     Indication: PAIN
     Dosage: TIME OF DOSAGES: MORNING, NOON, EVENING AND AT BEDTIME?DOSE: 10/325
  13. AMITIZA [Concomitant]
     Active Substance: LUBIPROSTONE
     Indication: CONSTIPATION
     Dosage: TIME OF DOSAGES: MORNING AND EVENING
  14. PLAVIX [Concomitant]
     Active Substance: CLOPIDOGREL BISULFATE
     Indication: CORONARY ARTERY DISEASE
     Dosage: TIME OF DOSAGES:NOON
  15. SIMVASTATIN. [Concomitant]
     Active Substance: SIMVASTATIN
     Indication: BLOOD CHOLESTEROL
     Dosage: TIME OF DOSAGES: EVENING
  16. PROZAC [Concomitant]
     Active Substance: FLUOXETINE HYDROCHLORIDE
     Indication: DEPRESSION
     Dosage: TIME OF DOSAGES: MORNING
  17. DOCUSATE SODIUM. [Concomitant]
     Active Substance: DOCUSATE SODIUM
     Indication: CONSTIPATION
     Dosage: DOSE: 8.6/50 MG?TIME OF DOSAGES: MORNING AND EVENING
  18. BACTROBAN [Concomitant]
     Active Substance: MUPIROCIN\MUPIROCIN CALCIUM
     Dosage: TIME OF DOSAGES:MORNING, NOON AND EVENING
  19. LANTUS [Concomitant]
     Active Substance: INSULIN GLARGINE
     Indication: DIABETES MELLITUS
     Dosage: TIME OF DOSAGES:MORNING AND EVENING DOSE:50 UNIT(S)
  20. FLOMAX [Concomitant]
     Active Substance: TAMSULOSIN HYDROCHLORIDE
     Indication: PROSTATIC DISORDER
     Dosage: TIME OF DOSAGES: EVENING
  21. PROTONIX [Concomitant]
     Active Substance: PANTOPRAZOLE SODIUM
     Indication: GASTROOESOPHAGEAL REFLUX DISEASE
     Dosage: TIME OF DOSAGES: MORNING
  22. IMDUR [Concomitant]
     Active Substance: ISOSORBIDE MONONITRATE
     Indication: CORONARY ARTERY DISEASE
     Dosage: TIME OF DOSAGES: MORNING
  23. LANTUS SOLOSTAR [Suspect]
     Active Substance: INSULIN GLARGINE
     Indication: TYPE 2 DIABETES MELLITUS
     Dosage: DOSE: 25 UNITS MORNING AND 50 UNITS AT NIGHT
     Route: 065
  24. HYDRALAZINE [Concomitant]
     Active Substance: HYDRALAZINE HYDROCHLORIDE
     Indication: BLOOD PRESSURE
     Dosage: TIME OF DOSAGES: MORNING, NOON AND EVENING
  25. RESTORIL [Concomitant]
     Active Substance: TEMAZEPAM
     Indication: INSOMNIA
     Dosage: TIME OF DOSAGES: EVENING

REACTIONS (4)
  - Leg amputation [Unknown]
  - Drug administration error [Unknown]
  - Finger amputation [Unknown]
  - Neuropathy peripheral [Not Recovered/Not Resolved]

NARRATIVE: CASE EVENT DATE: 198005
